FAERS Safety Report 7356245-4 (Version None)
Quarter: 2011Q1

REPORT INFORMATION
  Report Type: 
  Country: None (occurrence: None)
  Receive Date: 20110316
  Receipt Date: 20110310
  Transmission Date: 20110831
  Serious: Yes (Life-Threatening, Other)
  Sender: FDA-Public Use
  Company Number: FR-ELI_LILLY_AND_COMPANY-FR201103003210

PATIENT
  Age: 47 Year
  Sex: Male

DRUGS (7)
  1. DEPAKOTE [Concomitant]
     Route: 048
     Dates: end: 20110103
  2. CYAMEMAZINE [Concomitant]
     Dosage: UNK, UNKNOWN
  3. LEXOMIL [Concomitant]
     Route: 048
     Dates: end: 20110103
  4. CLOZAPINE [Concomitant]
     Route: 050
     Dates: end: 20110103
  5. VALIUM [Concomitant]
     Route: 048
     Dates: end: 20110103
  6. ZYPREXA [Suspect]
     Route: 048
     Dates: end: 20110103
  7. ABILIFY [Concomitant]
     Route: 048
     Dates: end: 20110103

REACTIONS (6)
  - PANCYTOPENIA [None]
  - POLYURIA [None]
  - HYPOVOLAEMIC SHOCK [None]
  - COMA [None]
  - INTENTIONAL OVERDOSE [None]
  - METABOLIC ACIDOSIS [None]
